FAERS Safety Report 4285545-X (Version None)
Quarter: 2004Q1

REPORT INFORMATION
  Report Type: 
  Country: None (occurrence: None)
  Receive Date: 20040204
  Receipt Date: 20040129
  Transmission Date: 20041129
  Serious: Yes (Other)
  Sender: FDA-Public Use
  Company Number: 04-02-0171

PATIENT
  Age: 38 Year
  Sex: Female
  Weight: 48 kg

DRUGS (2)
  1. TRAMADOL HCL [Suspect]
     Indication: DYSMENORRHOEA
     Dosage: TDS ORAL
     Route: 048
     Dates: start: 20020201, end: 20020912
  2. VALPROATE SODIUM [Concomitant]

REACTIONS (1)
  - ARTHRALGIA [None]
